FAERS Safety Report 12111779 (Version 1)
Quarter: 2016Q1

REPORT INFORMATION
  Report Type: Spontaneous
  Country: DK (occurrence: DK)
  Receive Date: 20160224
  Receipt Date: 20160224
  Transmission Date: 20160526
  Serious: Yes (Hospitalization)
  Sender: FDA-Public Use
  Company Number: DK-BAXTER-2016BAX008261

PATIENT
  Age: 56 Year
  Sex: Female

DRUGS (24)
  1. MABTHERA [Suspect]
     Active Substance: RITUXIMAB
     Indication: B-CELL LYMPHOMA
     Dosage: SERIES 1
     Route: 042
     Dates: start: 20140922, end: 20140924
  2. SULFAMETOXAZOL MED TRIMETOPRIM [Concomitant]
     Indication: INFECTION PROPHYLAXIS
     Route: 065
  3. HOLOXAN [Suspect]
     Active Substance: IFOSFAMIDE
     Indication: B-CELL LYMPHOMA
     Dosage: SERIES 1
     Route: 042
     Dates: start: 20140922, end: 20140924
  4. HOLOXAN [Suspect]
     Active Substance: IFOSFAMIDE
     Dosage: SERIES 2
     Route: 042
     Dates: start: 20141013, end: 20141015
  5. CARBOPLATIN. [Suspect]
     Active Substance: CARBOPLATIN
     Dosage: SERIES 2
     Route: 042
     Dates: start: 20141013, end: 20141015
  6. ETOPOSID EBEWE [Suspect]
     Active Substance: ETOPOSIDE
     Indication: B-CELL LYMPHOMA
     Dosage: SERIES 1
     Route: 042
     Dates: start: 20140922, end: 20140924
  7. ETOPOSID EBEWE [Suspect]
     Active Substance: ETOPOSIDE
     Dosage: SERIES 2
     Route: 042
     Dates: start: 20141013, end: 20141015
  8. GASTRO-TIMELETS [Concomitant]
     Indication: NAUSEA
     Route: 065
  9. ZOVIR [Concomitant]
     Active Substance: ACYCLOVIR
     Indication: HERPES VIRUS INFECTION
     Route: 065
  10. ETOPOSID EBEWE [Suspect]
     Active Substance: ETOPOSIDE
     Route: 042
  11. KALEORID [Concomitant]
     Active Substance: POTASSIUM CHLORIDE
     Indication: MINERAL SUPPLEMENTATION
     Route: 065
  12. HOLOXAN [Suspect]
     Active Substance: IFOSFAMIDE
     Route: 042
     Dates: end: 201411
  13. HOLOXAN [Suspect]
     Active Substance: IFOSFAMIDE
     Route: 042
  14. MABTHERA [Suspect]
     Active Substance: RITUXIMAB
     Route: 042
     Dates: end: 201411
  15. DEXAMETASONE [Concomitant]
     Active Substance: DEXAMETHASONE
     Indication: NEOPLASM MALIGNANT
     Route: 065
  16. PANTOPRAZOL ACTAVIS [Concomitant]
     Active Substance: PANTOPRAZOLE SODIUM
     Indication: GASTROOESOPHAGEAL REFLUX PROPHYLAXIS
     Route: 065
  17. UROMITEXAN [Suspect]
     Active Substance: MESNA
     Indication: PRODUCT USED FOR UNKNOWN INDICATION
     Route: 065
     Dates: start: 20140922
  18. CARBOPLATIN. [Suspect]
     Active Substance: CARBOPLATIN
     Indication: B-CELL LYMPHOMA
     Dosage: SERIES 1
     Route: 042
     Dates: start: 20140922, end: 20140924
  19. CARBOPLATIN. [Suspect]
     Active Substance: CARBOPLATIN
     Route: 042
     Dates: end: 201411
  20. CARBOPLATIN. [Suspect]
     Active Substance: CARBOPLATIN
     Route: 042
  21. ETOPOSID EBEWE [Suspect]
     Active Substance: ETOPOSIDE
     Route: 042
     Dates: end: 201411
  22. MABTHERA [Suspect]
     Active Substance: RITUXIMAB
     Route: 042
  23. ALLOPURINOL. [Concomitant]
     Active Substance: ALLOPURINOL
     Indication: GOUT
     Route: 065
  24. MABTHERA [Suspect]
     Active Substance: RITUXIMAB
     Dosage: SERIES 2
     Route: 042
     Dates: start: 20141013, end: 20141015

REACTIONS (1)
  - Posterior reversible encephalopathy syndrome [Unknown]

NARRATIVE: CASE EVENT DATE: 201411
